FAERS Safety Report 16071966 (Version 1)
Quarter: 2019Q1

REPORT INFORMATION
  Report Type: Spontaneous
  Country: FR (occurrence: FR)
  Receive Date: 20190314
  Receipt Date: 20190314
  Transmission Date: 20190418
  Serious: Yes (Other)
  Sender: FDA-Public Use
  Company Number: FR-GUERBET-FR-20190135

PATIENT
  Age: 52 Year
  Sex: Female

DRUGS (1)
  1. OPTIJECT 350 [Suspect]
     Active Substance: IOVERSOL
     Indication: PRODUCT USED FOR UNKNOWN INDICATION
     Route: 065
     Dates: start: 20190221, end: 20190221

REACTIONS (6)
  - Presyncope [Unknown]
  - Vomiting [Unknown]
  - Abdominal pain [Unknown]
  - Loss of consciousness [Unknown]
  - Injury [Unknown]
  - Anal incontinence [Unknown]

NARRATIVE: CASE EVENT DATE: 20190221
